FAERS Safety Report 10300632 (Version 1)
Quarter: 2014Q3

REPORT INFORMATION
  Report Type: Spontaneous
  Country: US (occurrence: US)
  Receive Date: 20140714
  Receipt Date: 20140714
  Transmission Date: 20150326
  Serious: Yes (Disabling)
  Sender: FDA-Public Use
  Company Number: US-AMGEN-USASP2014052057

PATIENT
  Age: 63 Year
  Sex: Female
  Weight: 96.15 kg

DRUGS (1)
  1. ENBREL [Suspect]
     Active Substance: ETANERCEPT
     Indication: RHEUMATOID ARTHRITIS
     Dosage: 50 MG, QWK
     Route: 058

REACTIONS (3)
  - Headache [Not Recovered/Not Resolved]
  - Retinal haemorrhage [Recovered/Resolved]
  - Urinary tract infection [Recovered/Resolved]
